FAERS Safety Report 6377378-5 (Version None)
Quarter: 2009Q3

REPORT INFORMATION
  Report Type: 
  Country: None (occurrence: None)
  Receive Date: 20090925
  Receipt Date: 20090917
  Transmission Date: 20100115
  Serious: Yes (Hospitalization)
  Sender: FDA-Public Use
  Company Number: US-JNJFOC-20090906063

PATIENT
  Age: 27 Year
  Sex: Female

DRUGS (4)
  1. RISPERDAL CONSTA [Suspect]
     Route: 030
  2. RISPERDAL CONSTA [Suspect]
     Indication: BIPOLAR DISORDER
     Route: 030
  3. YASMIN [Suspect]
     Indication: CONTRACEPTION
     Route: 048
  4. ADDERALL 10 [Concomitant]
     Route: 048

REACTIONS (7)
  - APHASIA [None]
  - CONDITION AGGRAVATED [None]
  - EXPRESSIVE LANGUAGE DISORDER [None]
  - FATIGUE [None]
  - MALAISE [None]
  - OVERDOSE [None]
  - PULMONARY THROMBOSIS [None]
